FAERS Safety Report 10584772 (Version 1)
Quarter: 2014Q4

REPORT INFORMATION
  Report Type: Spontaneous
  Country: US (occurrence: None)
  Receive Date: 20141113
  Receipt Date: 20141113
  Transmission Date: 20150529
  Serious: Yes (Other)
  Sender: FDA-Public Use
  Company Number: 1713747-2014-999190

PATIENT
  Age: 73 Year
  Sex: Male

DRUGS (1)
  1. DELFLEX NEUTRAL PH WITH ATTACHED STAY-SAFE EXCHANGE SET [Suspect]
     Active Substance: CALCIUM CHLORIDE\DEXTROSE MONOHYDRATE\MAGNESIUM CHLORIDE\SODIUM CHLORIDE\SODIUM LACTATE
     Indication: CHRONIC KIDNEY DISEASE
     Route: 033

REACTIONS (2)
  - Peritonitis [None]
  - Streptococcal infection [None]

NARRATIVE: CASE EVENT DATE: 20130828
